FAERS Safety Report 5570333-4 (Version None)
Quarter: 2007Q4

REPORT INFORMATION
  Report Type: 
  Country: None (occurrence: None)
  Receive Date: 20071219
  Receipt Date: 20071219
  Transmission Date: 20080405
  Serious: Yes (Other)
  Sender: FDA-Public Use
  Company Number: None

PATIENT
  Age: 41 Year
  Sex: Male
  Weight: 79.8331 kg

DRUGS (1)
  1. CHANTIX [Suspect]
     Indication: NICOTINE DEPENDENCE
     Dosage: 1 EACH 1MG PILL BID PO
     Route: 048
     Dates: start: 20070827, end: 20071101

REACTIONS (3)
  - AGITATION [None]
  - DRUG INEFFECTIVE [None]
  - IRRITABILITY [None]
